FAERS Safety Report 4423984-4 (Version None)
Quarter: 2004Q3

REPORT INFORMATION
  Report Type: 
  Country: None (occurrence: None)
  Receive Date: 20040805
  Receipt Date: 20040723
  Transmission Date: 20050211
  Serious: Yes (Hospitalization)
  Sender: FDA-Public Use
  Company Number: 2004050693

PATIENT
  Age: 80 Year
  Sex: Male
  Weight: 75 kg

DRUGS (7)
  1. ATORVASTATIN (ATORVASTATIN) [Suspect]
     Indication: AGE INDETERMINATE MYOCARDIAL INFARCTION
     Dosage: 20 MG (20 MG , 1 IN 1 D), ORAL (SEE IMAGE)
     Route: 048
     Dates: start: 20040617, end: 20040707
  2. ATORVASTATIN (ATORVASTATIN) [Suspect]
     Indication: BLOOD CHOLESTEROL ABNORMAL
     Dosage: 20 MG (20 MG , 1 IN 1 D), ORAL (SEE IMAGE)
     Route: 048
     Dates: start: 20040617, end: 20040707
  3. CLOPIDOGREL [Concomitant]
  4. FUROSEMIDE [Concomitant]
  5. BECLOMETHASONE DIPROPIONATE [Concomitant]
  6. ALBUTEROL SULFATE [Concomitant]
  7. CAPTOPRIL [Concomitant]

REACTIONS (5)
  - BLOOD BICARBONATE INCREASED [None]
  - MYALGIA [None]
  - ORCHITIS [None]
  - PAIN IN EXTREMITY [None]
  - TESTICULAR PAIN [None]
